FAERS Safety Report 20693232 (Version 1)
Quarter: 2022Q2

REPORT INFORMATION
  Report Type: Spontaneous
  Country: US (occurrence: US)
  Receive Date: 20220410
  Receipt Date: 20220410
  Transmission Date: 20220721
  Serious: No
  Sender: FDA-Public Use
  Company Number: US-BRISTOL-MYERS SQUIBB COMPANY-2022-011939

PATIENT
  Age: 63 Year
  Sex: Female

DRUGS (1)
  1. ABRAXANE [Suspect]
     Active Substance: PACLITAXEL
     Indication: Product used for unknown indication
     Dosage: DOSE : INFUSE 160MG INTRAVENOUSLY;     FREQ : ON DAYS 1, 8, 15 OF A 28 DAY CYCLE REDUCED TO 120MG
     Route: 042

REACTIONS (1)
  - Adverse event [Unknown]
